FAERS Safety Report 8117223 (Version 2)
Quarter: 2014Q2

REPORT INFORMATION
  Report Type: Spontaneous
  Country: US (occurrence: None)
  Receive Date: 20110823
  Receipt Date: 20140604
  Transmission Date: 20141212
  Serious: Yes (Hospitalization)
  Sender: FDA-Public Use
  Company Number: 20110415CINRY1950

PATIENT
  Sex: Female

DRUGS (4)
  1. CINRYZE [Suspect]
     Indication: HEREDITARY ANGIOEDEMA
     Dosage: (1000 UNIT, 2 IN 1 WK), INTRAVENOUS
     Route: 042
     Dates: start: 201012, end: 20110404
  2. CINRYZE [Suspect]
     Indication: PROPHYLAXIS
     Dosage: (1000 UNIT, 2 IN 1 WK), INTRAVENOUS
     Route: 042
     Dates: start: 201012, end: 20110404
  3. BENADRYL [Concomitant]
  4. PHENERGAN [Concomitant]

REACTIONS (5)
  - Hereditary angioedema [None]
  - Injury [None]
  - Hypersensitivity [None]
  - Dyspnoea [None]
  - Hypotension [None]
